FAERS Safety Report 7103469-7 (Version None)
Quarter: 2010Q4

REPORT INFORMATION
  Report Type: 
  Country: None (occurrence: None)
  Receive Date: 20101115
  Receipt Date: 20101110
  Transmission Date: 20110411
  Serious: Yes (Death, Other)
  Sender: FDA-Public Use
  Company Number: US-CELGENEUS-163-21880-10111600

PATIENT
  Sex: Female

DRUGS (5)
  1. REVLIMID [Suspect]
     Route: 048
     Dates: start: 20060101
  2. REVLIMID [Suspect]
     Route: 048
     Dates: start: 20060201
  3. REVLIMID [Suspect]
     Route: 048
     Dates: start: 20080701
  4. REVLIMID [Suspect]
     Route: 048
     Dates: start: 20100401
  5. WHOLE BLOOD [Concomitant]
     Route: 051

REACTIONS (3)
  - DEATH [None]
  - HAEMOGLOBIN DECREASED [None]
  - PLATELET COUNT DECREASED [None]
